FAERS Safety Report 7798123-2 (Version None)
Quarter: 2011Q4

REPORT INFORMATION
  Report Type: 
  Country: None (occurrence: None)
  Receive Date: 20111005
  Receipt Date: 20110929
  Transmission Date: 20120403
  Serious: Yes (Other)
  Sender: FDA-Public Use
  Company Number: US-ROXANE LABORATORIES, INC.-2011-RO-01370RO

PATIENT
  Age: 61 Year
  Sex: Female

DRUGS (4)
  1. CARBIDOPA AND LEVODOPA [Suspect]
     Indication: PARKINSON'S DISEASE
  2. ROPINIROLE [Suspect]
     Indication: PARKINSON'S DISEASE
  3. LEVETIRACETAM [Suspect]
     Indication: DYSKINESIA
  4. TRIHEXYPHENIDYL HCL [Suspect]
     Indication: PARKINSON'S DISEASE

REACTIONS (3)
  - MYOCLONUS [None]
  - DYSKINESIA [None]
  - DRUG INEFFECTIVE [None]
